FAERS Safety Report 10206980 (Version 1)
Quarter: 2014Q2

REPORT INFORMATION
  Report Type: Spontaneous
  Country: US (occurrence: None)
  Receive Date: 20140527
  Receipt Date: 20140527
  Transmission Date: 20141212
  Serious: Yes (Hospitalization)
  Sender: FDA-Public Use
  Company Number: UNT-2014-000400

PATIENT
  Age: 84 Year
  Sex: Female

DRUGS (2)
  1. REMODULIN [Suspect]
     Indication: PULMONARY ARTERIAL HYPERTENSION
     Dosage: CONTINUING
     Route: 058
     Dates: start: 20081231
  2. REVATIO (SILDENAFIL CITRATE) [Concomitant]

REACTIONS (5)
  - Dyspnoea [None]
  - Fatigue [None]
  - Asthenia [None]
  - Decreased appetite [None]
  - Pneumonia [None]
